FAERS Safety Report 7656656-3 (Version None)
Quarter: 2011Q3

REPORT INFORMATION
  Report Type: 
  Country: None (occurrence: None)
  Receive Date: 20110729
  Receipt Date: 20110719
  Transmission Date: 20111222
  Serious: Yes (Hospitalization, Other)
  Sender: FDA-Public Use
  Company Number: JPI-P-015966

PATIENT
  Age: 40 Year
  Sex: Female
  Weight: 86.637 kg

DRUGS (3)
  1. XYREM [Suspect]
     Indication: SOMNOLENCE
     Dosage: 4.5 GM (2.25 GM,2 IN 1 D),ORAL
     Route: 048
     Dates: start: 20110520, end: 20110630
  2. XYREM [Suspect]
     Indication: CATAPLEXY
     Dosage: 4.5 GM (2.25 GM,2 IN 1 D),ORAL
     Route: 048
     Dates: start: 20110520, end: 20110630
  3. XYREM [Suspect]
     Indication: NARCOLEPSY
     Dosage: 4.5 GM (2.25 GM,2 IN 1 D),ORAL
     Route: 048
     Dates: start: 20110520, end: 20110630

REACTIONS (7)
  - MENORRHAGIA [None]
  - FLUID RETENTION [None]
  - SOMNOLENCE [None]
  - PANCREATIC ENZYMES INCREASED [None]
  - GALLBLADDER DISORDER [None]
  - MENINGIOMA SURGERY [None]
  - OEDEMA PERIPHERAL [None]
